FAERS Safety Report 20950511 (Version 1)
Quarter: 2022Q2

REPORT INFORMATION
  Report Type: Spontaneous
  Country: HR (occurrence: HR)
  Receive Date: 20220613
  Receipt Date: 20220613
  Transmission Date: 20220721
  Serious: Yes (Other)
  Sender: FDA-Public Use
  Company Number: None

PATIENT
  Sex: Female

DRUGS (2)
  1. IMATINIB [Suspect]
     Active Substance: IMATINIB
     Indication: Philadelphia positive chronic myeloid leukaemia
     Dosage: UNK
     Dates: start: 201511
  2. FUROSEMIDE [Concomitant]
     Active Substance: FUROSEMIDE
     Indication: Product used for unknown indication
     Dosage: UNK

REACTIONS (14)
  - Malignant neoplasm progression [Unknown]
  - Philadelphia positive chronic myeloid leukaemia [Unknown]
  - Tumour marker increased [Unknown]
  - Platelet count increased [Unknown]
  - Oedema peripheral [Unknown]
  - Respiratory tract infection [Unknown]
  - Osteitis [Unknown]
  - Leukocytosis [Unknown]
  - Hepatic lesion [Unknown]
  - Face oedema [Unknown]
  - Fatigue [Unknown]
  - Diarrhoea [Unknown]
  - Eyelid oedema [Unknown]
  - Periorbital oedema [Unknown]

NARRATIVE: CASE EVENT DATE: 20160201
